FAERS Safety Report 14881130 (Version 1)
Quarter: 2018Q2

REPORT INFORMATION
  Report Type: Spontaneous
  Country: US (occurrence: US)
  Receive Date: 20180511
  Receipt Date: 20180511
  Transmission Date: 20180711
  Serious: Yes (Hospitalization, Other)
  Sender: FDA-Public Use
  Company Number: US-SA-2018SA128586

PATIENT
  Sex: Male

DRUGS (1)
  1. CEREZYME [Suspect]
     Active Substance: IMIGLUCERASE
     Route: 041

REACTIONS (4)
  - Splenomegaly [Not Recovered/Not Resolved]
  - Jaundice [Unknown]
  - Wound [Unknown]
  - Colon cancer [Unknown]
